FAERS Safety Report 8522747 (Version 6)
Quarter: 2013Q2

REPORT INFORMATION
  Report Type: Spontaneous
  Country: US (occurrence: US)
  Receive Date: 20120419
  Receipt Date: 20130410
  Transmission Date: 20140414
  Serious: Yes (Hospitalization, Disabling, Other)
  Sender: FDA-Public Use
  Company Number: US-009507513-1204USA02427

PATIENT
  Sex: Female

DRUGS (4)
  1. FOSAMAX [Suspect]
     Indication: OSTEOPOROSIS PROPHYLAXIS
     Dosage: 10 MG, QD
     Route: 048
     Dates: start: 200110, end: 200110
  2. FOSAMAX [Suspect]
     Dosage: 70 MG, QW
     Route: 048
     Dates: start: 200111, end: 20080310
  3. ALENDRONATE SODIUM [Suspect]
     Indication: OSTEOPOROSIS PROPHYLAXIS
     Dosage: 70 MG, QW
     Route: 048
     Dates: start: 20080310, end: 20101119
  4. BENICAR [Concomitant]
     Indication: HYPERTENSION
     Dosage: UNK
     Dates: start: 2000

REACTIONS (28)
  - Femur fracture [Unknown]
  - Intramedullary rod insertion [Unknown]
  - Knee arthroplasty [Unknown]
  - Knee arthroplasty [Unknown]
  - Joint dislocation [Unknown]
  - Joint dislocation reduction [Unknown]
  - Rotator cuff repair [Unknown]
  - Shoulder arthroplasty [Unknown]
  - Tendon sheath incision [Unknown]
  - Ligament sprain [Unknown]
  - Anxiety [Not Recovered/Not Resolved]
  - Fall [Unknown]
  - Chest discomfort [Unknown]
  - Tooth extraction [Unknown]
  - Endodontic procedure [Unknown]
  - Arthritis [Unknown]
  - Gastrointestinal disorder [Unknown]
  - Osteoarthritis [Unknown]
  - Avulsion fracture [Unknown]
  - Osteoarthritis [Not Recovered/Not Resolved]
  - Gait disturbance [Unknown]
  - Seasonal allergy [Unknown]
  - Periarthritis [Unknown]
  - Rotator cuff syndrome [Unknown]
  - Fibromyalgia [Unknown]
  - Rotator cuff syndrome [Unknown]
  - Bursitis [Unknown]
  - Thrombophlebitis superficial [Unknown]
